FAERS Safety Report 13092053 (Version 3)
Quarter: 2017Q1

REPORT INFORMATION
  Report Type: Report from Study
  Country: None (occurrence: TR)
  Receive Date: 20170106
  Receipt Date: 20170210
  Transmission Date: 20170428
  Serious: Yes (Hospitalization)
  Sender: FDA-Public Use
  Company Number: TR-ABBVIE-17K-161-1829475-00

PATIENT
  Age: 42 Year
  Sex: Female
  Weight: 82 kg

DRUGS (4)
  1. PREDNOL [Concomitant]
     Active Substance: METHYLPREDNISOLONE
     Indication: CROHN^S DISEASE
     Route: 048
     Dates: start: 2014
  2. HUMIRA [Suspect]
     Active Substance: ADALIMUMAB
     Route: 058
     Dates: start: 20170113, end: 20170123
  3. IMURAN [Concomitant]
     Active Substance: AZATHIOPRINE
     Indication: CROHN^S DISEASE
     Dates: start: 20161230
  4. HUMIRA [Suspect]
     Active Substance: ADALIMUMAB
     Indication: CROHN^S DISEASE
     Route: 058
     Dates: start: 20161230, end: 20161230

REACTIONS (5)
  - Gastrointestinal oedema [Recovered/Resolved]
  - Gastrointestinal pain [Recovering/Resolving]
  - Gastrointestinal fistula [Recovering/Resolving]
  - Gastrointestinal oedema [Recovering/Resolving]
  - Gastrointestinal fistula [Recovered/Resolved]

NARRATIVE: CASE EVENT DATE: 20161230
